FAERS Safety Report 4443007-0 (Version None)
Quarter: 2004Q3

REPORT INFORMATION
  Report Type: 
  Country: None (occurrence: None)
  Receive Date: 20040903
  Receipt Date: 20040526
  Transmission Date: 20050211
  Serious: Yes (Other)
  Sender: FDA-Public Use
  Company Number: 2004UW11050

PATIENT
  Age: 76 Year
  Sex: Female
  Weight: 82.5547 kg

DRUGS (3)
  1. CRESTOR [Suspect]
     Indication: BLOOD CHOLESTEROL INCREASED
     Dosage: 10 MG QD PO
     Route: 048
  2. BEXTRA [Concomitant]
  3. CLARITIN [Concomitant]

REACTIONS (1)
  - ULCER [None]
